FAERS Safety Report 24160592 (Version 1)
Quarter: 2024Q3

REPORT INFORMATION
  Report Type: Spontaneous
  Country: JP (occurrence: JP)
  Receive Date: 20240801
  Receipt Date: 20240801
  Transmission Date: 20241017
  Serious: Yes (Other)
  Sender: ROCHE
  Company Number: JP-CHUGAI-2024025270

PATIENT
  Age: 79 Year
  Sex: Male

DRUGS (2)
  1. VABYSMO [Suspect]
     Active Substance: FARICIMAB\FARICIMAB-SVOA
     Indication: Age-related macular degeneration
     Dosage: UNK, BOTH EYES
     Route: 050
  2. VABYSMO [Suspect]
     Active Substance: FARICIMAB\FARICIMAB-SVOA
     Dosage: UNK, RIGHT EYE
     Route: 050

REACTIONS (3)
  - Retinal vascular occlusion [Unknown]
  - Retinal pigment epithelial tear [Unknown]
  - Eye inflammation [Recovering/Resolving]
